FAERS Safety Report 16191044 (Version 1)
Quarter: 2019Q2

REPORT INFORMATION
  Report Type: Spontaneous
  Country: AR (occurrence: AR)
  Receive Date: 20190412
  Receipt Date: 20190412
  Transmission Date: 20190711
  Serious: Yes (Other)
  Sender: FDA-Public Use
  Company Number: AR-PFIZER INC-2019153372

PATIENT
  Age: 65 Year
  Sex: Female

DRUGS (1)
  1. XELJANZ XR [Suspect]
     Active Substance: TOFACITINIB CITRATE
     Indication: RHEUMATOID ARTHRITIS
     Dosage: 11 MG, 1X/DAY
     Dates: start: 20181022

REACTIONS (6)
  - Rash erythematous [Unknown]
  - Hip fracture [Unknown]
  - Product use issue [Unknown]
  - Rash [Unknown]
  - Laboratory test abnormal [Unknown]
  - Fall [Unknown]

NARRATIVE: CASE EVENT DATE: 201811
